FAERS Safety Report 9657746 (Version 2)
Quarter: 2013Q4

REPORT INFORMATION
  Report Type: Spontaneous
  Country: US (occurrence: US)
  Receive Date: 20131030
  Receipt Date: 20131030
  Transmission Date: 20140711
  Serious: Yes (Disabling, Other)
  Sender: FDA-Public Use
  Company Number: US-BAYER-2013-105630

PATIENT
  Age: 89 Year
  Sex: Male
  Weight: 91.61 kg

DRUGS (9)
  1. XARELTO [Suspect]
     Indication: ATRIAL FIBRILLATION
     Dosage: 15 MG, QD
     Route: 048
     Dates: start: 20130711
  2. XARELTO [Suspect]
     Indication: DEEP VEIN THROMBOSIS
  3. XARELTO [Suspect]
     Indication: CEREBROVASCULAR ACCIDENT PROPHYLAXIS
  4. XARELTO [Suspect]
     Indication: CEREBROVASCULAR ACCIDENT PROPHYLAXIS
  5. XARELTO [Suspect]
     Indication: EMBOLISM VENOUS
  6. ACETYLSALICYLIC ACID({=100 MG) [Interacting]
     Indication: DEEP VEIN THROMBOSIS
     Dosage: UNK
     Route: 065
  7. WARFARIN [Interacting]
     Indication: DEEP VEIN THROMBOSIS
     Dosage: UNK
     Route: 065
  8. WARFARIN [Interacting]
     Indication: DEEP VEIN THROMBOSIS
     Dosage: UNK
     Dates: end: 20130708
  9. LOVENOX [Interacting]
     Indication: DEEP VEIN THROMBOSIS
     Dosage: UNK
     Route: 065

REACTIONS (2)
  - Haemorrhage intracranial [Unknown]
  - Hemiparesis [Unknown]
